FAERS Safety Report 5027653-1 (Version None)
Quarter: 2006Q2

REPORT INFORMATION
  Report Type: 
  Country: None (occurrence: None)
  Receive Date: 20060616
  Receipt Date: 20060606
  Transmission Date: 20061013
  Serious: Yes (Other)
  Sender: FDA-Public Use
  Company Number: FR-JNJFOC-20060503930

PATIENT
  Age: 10 Year
  Sex: Male
  Weight: 21 kg

DRUGS (2)
  1. RISPERDAL [Suspect]
     Indication: AGGRESSION
     Route: 048
  2. RISPERDAL [Suspect]
     Indication: PSYCHOTIC DISORDER
     Dosage: EQUATING TO 3MG/DAY
     Route: 048

REACTIONS (2)
  - DRUG TOXICITY [None]
  - EXTRAPYRAMIDAL DISORDER [None]
